FAERS Safety Report 23190474 (Version 10)
Quarter: 2024Q4

REPORT INFORMATION
  Report Type: Report from Study
  Country: CA (occurrence: CA)
  Receive Date: 20231116
  Receipt Date: 20241111
  Transmission Date: 20250114
  Serious: Yes (Other)
  Sender: ROCHE
  Company Number: CA-ROCHE-2118216

PATIENT
  Age: 60 Year
  Sex: Male

DRUGS (7)
  1. OCREVUS [Suspect]
     Active Substance: OCRELIZUMAB
     Indication: Relapsing-remitting multiple sclerosis
     Dosage: 300 MG AT DAY 0 AND 14, THEN 600 MG EVERY 6 MONTH
     Route: 042
     Dates: start: 20180430
  2. OCREVUS [Suspect]
     Active Substance: OCRELIZUMAB
     Indication: Primary progressive multiple sclerosis
     Route: 042
  3. BENADRYL [Concomitant]
     Active Substance: DIPHENHYDRAMINE HYDROCHLORIDE
     Indication: Premedication
     Dosage: 30-60 MIN PRIOR TO EACH OCREVUS INFUSION PO/IV
     Dates: start: 20180430
  4. SOLU-MEDROL [Concomitant]
     Active Substance: METHYLPREDNISOLONE SODIUM SUCCINATE
     Indication: Premedication
     Dosage: 30 MIN PRIOR TO EACH OCREVUS INFUSION
     Route: 042
     Dates: start: 20180430
  5. COPAXONE [Concomitant]
     Active Substance: GLATIRAMER ACETATE
  6. AMLODIPINE [Concomitant]
     Active Substance: AMLODIPINE BESYLATE
     Indication: Hypertension
     Route: 048
  7. TYLENOL [Concomitant]
     Active Substance: ACETAMINOPHEN
     Route: 048
     Dates: start: 20180430, end: 20180430

REACTIONS (24)
  - Mobility decreased [Not Recovered/Not Resolved]
  - Infusion related reaction [Recovered/Resolved]
  - Fatigue [Not Recovered/Not Resolved]
  - Photophobia [Not Recovered/Not Resolved]
  - Vision blurred [Not Recovered/Not Resolved]
  - Muscle spasms [Not Recovered/Not Resolved]
  - Neuralgia [Not Recovered/Not Resolved]
  - Feeling abnormal [Not Recovered/Not Resolved]
  - Diarrhoea [Recovered/Resolved]
  - Diarrhoea [Recovered/Resolved]
  - Eye pain [Recovered/Resolved]
  - Hyperaesthesia [Recovered/Resolved]
  - Constipation [Recovered/Resolved]
  - Constipation [Recovered/Resolved]
  - Visual field tests abnormal [Unknown]
  - Dizziness [Recovered/Resolved]
  - Dyspnoea [Recovered/Resolved]
  - Pain in extremity [Recovered/Resolved]
  - Bone loss [Unknown]
  - Herpes zoster [Recovered/Resolved]
  - Thyroid mass [Unknown]
  - Tooth disorder [Unknown]
  - Off label use [Unknown]
  - Hernia [Unknown]

NARRATIVE: CASE EVENT DATE: 20180430
